FAERS Safety Report 5025055-5 (Version None)
Quarter: 2006Q2

REPORT INFORMATION
  Report Type: 
  Country: None (occurrence: None)
  Receive Date: 20060613
  Receipt Date: 20060606
  Transmission Date: 20061013
  Serious: Yes (Hospitalization)
  Sender: FDA-Public Use
  Company Number: US-BRISTOL-MYERS SQUIBB COMPANY-13402797

PATIENT
  Age: 53 Year
  Sex: Male

DRUGS (4)
  1. ERBITUX [Suspect]
     Indication: OESOPHAGEAL CARCINOMA
     Dosage: INITIATED ON 22-FEB-2006 AT 400 MG/M2/TOTAL DOSE = 2884.
     Dates: start: 20060329, end: 20060329
  2. CARBOPLATIN [Suspect]
     Indication: OESOPHAGEAL CARCINOMA
     Dosage: 1 DOSAGE FORM = 2 AUC/INITIATED ON 22-FEB-2006/TOTAL DOSE = 1046 MG.
     Dates: start: 20060329, end: 20060329
  3. PACLITAXEL [Suspect]
     Indication: OESOPHAGEAL CARCINOMA
     Dosage: INITIATED ON 22-FEB-2006/TOTAL DOSE = 412 MG.
     Dates: start: 20060329, end: 20060329
  4. RADIATION THERAPY [Suspect]
     Indication: OESOPHAGEAL CARCINOMA
     Dosage: INITIATED ON 22-FEB-2006/TOTAL OF 50.4 GY/28 FRACTIONS.
     Dates: start: 20060101

REACTIONS (5)
  - ANASTOMOTIC LEAK [None]
  - GASTROINTESTINAL NECROSIS [None]
  - HYPOTENSION [None]
  - INFECTION [None]
  - RESPIRATORY DISTRESS [None]
